FAERS Safety Report 4980847-3 (Version None)
Quarter: 2006Q2

REPORT INFORMATION
  Report Type: 
  Country: None (occurrence: None)
  Receive Date: 20060424
  Receipt Date: 20051223
  Transmission Date: 20061013
  Serious: Yes (Hospitalization, Other)
  Sender: FDA-Public Use
  Company Number: US-MERCK-0512USA03757

PATIENT
  Age: 70 Year
  Sex: Female
  Weight: 55 kg

DRUGS (6)
  1. VIOXX [Suspect]
     Indication: BACK PAIN
     Route: 048
     Dates: start: 19990901, end: 20041001
  2. VIOXX [Suspect]
     Route: 048
     Dates: start: 19990901, end: 20041001
  3. VIOXX [Suspect]
     Indication: PAIN IN EXTREMITY
     Route: 048
     Dates: start: 19990901, end: 20041001
  4. VIOXX [Suspect]
     Route: 048
     Dates: start: 19990901, end: 20041001
  5. EXTRA STRENGTH TYLENOL [Concomitant]
     Route: 065
  6. FLEXERIL [Concomitant]
     Route: 048

REACTIONS (13)
  - ABDOMINAL DISCOMFORT [None]
  - ANGINA PECTORIS [None]
  - CARDIOVASCULAR DISORDER [None]
  - CHEST PAIN [None]
  - DYSPNOEA [None]
  - HYPERTENSION [None]
  - INSOMNIA [None]
  - INTERVERTEBRAL DISC PROTRUSION [None]
  - MYOCARDIAL INFARCTION [None]
  - OVERDOSE [None]
  - ROAD TRAFFIC ACCIDENT [None]
  - UPPER RESPIRATORY TRACT INFECTION [None]
  - WEIGHT DECREASED [None]
